FAERS Safety Report 5655295-3 (Version None)
Quarter: 2008Q1

REPORT INFORMATION
  Report Type: 
  Country: None (occurrence: None)
  Receive Date: 20080307
  Receipt Date: 20080303
  Transmission Date: 20080703
  Serious: Yes (Life-Threatening, Hospitalization)
  Sender: FDA-Public Use
  Company Number: D0056369A

PATIENT
  Age: 42 Year
  Sex: Male

DRUGS (6)
  1. ELONTRIL [Suspect]
     Dosage: 300MG PER DAY
     Route: 048
     Dates: start: 20071001
  2. TREVILOR [Suspect]
     Dosage: 225MG PER DAY
     Route: 048
     Dates: start: 20070201
  3. ZYPREXA [Suspect]
     Dosage: 5MG PER DAY
     Route: 048
     Dates: start: 20071112, end: 20071125
  4. ZOLPIDEM [Suspect]
     Dosage: 7.5MG PER DAY
     Route: 048
     Dates: start: 20071121, end: 20071126
  5. RISPERDAL [Suspect]
     Dosage: 1MG PER DAY
     Route: 048
     Dates: start: 20071121, end: 20071126
  6. TAVOR [Concomitant]
     Dosage: 1.5MG PER DAY
     Route: 048
     Dates: start: 20071116, end: 20071202

REACTIONS (3)
  - DRUG INTERACTION [None]
  - MYALGIA [None]
  - RHABDOMYOLYSIS [None]
